FAERS Safety Report 9246844 (Version 1)
Quarter: 2013Q2

REPORT INFORMATION
  Report Type: Spontaneous
  Country: FR (occurrence: FR)
  Receive Date: 20130422
  Receipt Date: 20130422
  Transmission Date: 20140414
  Serious: Yes (Death, Congenital Anomaly)
  Sender: FDA-Public Use
  Company Number: FR-NICOBRDEVP-2013-06357

PATIENT
  Sex: Female

DRUGS (1)
  1. GABAPENTIN (UNKNOWN) [Suspect]
     Indication: PRODUCT USED FOR UNKNOWN INDICATION
     Dosage: UNK
     Route: 064

REACTIONS (4)
  - Exomphalos [Fatal]
  - Skull malformation [Fatal]
  - Anal atresia [Fatal]
  - Foetal exposure during pregnancy [Fatal]
